FAERS Safety Report 15110223 (Version 2)
Quarter: 2018Q3

REPORT INFORMATION
  Report Type: Report from Study
  Country: JP (occurrence: JP)
  Receive Date: 20180705
  Receipt Date: 20180821
  Transmission Date: 20181010
  Serious: Yes (Death, Hospitalization)
  Sender: FDA-Public Use
  Company Number: JP-PFIZER INC-2018269371

PATIENT
  Age: 69 Year
  Sex: Female
  Weight: 76 kg

DRUGS (5)
  1. CYTARABINE. [Suspect]
     Active Substance: CYTARABINE
     Indication: ACUTE MYELOID LEUKAEMIA
     Dosage: 100 MG/M2, DAILY
     Route: 042
     Dates: start: 20180615, end: 20180622
  2. DAUNOMYCIN [Suspect]
     Active Substance: DAUNORUBICIN
     Indication: ACUTE MYELOID LEUKAEMIA
     Dosage: 60 MG/M2, DAILY
     Route: 042
     Dates: start: 20180615, end: 20180615
  3. BLINDED THERAPY [Suspect]
     Active Substance: INVESTIGATIONAL PRODUCT
     Indication: ACUTE MYELOID LEUKAEMIA
     Dosage: UNK
     Dates: start: 20180622
  4. DAUNOMYCIN [Suspect]
     Active Substance: DAUNORUBICIN
     Dosage: 60 MG/M2, DAILY
     Route: 042
     Dates: start: 20180616, end: 20180616
  5. DAUNOMYCIN [Suspect]
     Active Substance: DAUNORUBICIN
     Dosage: 60 MG/M2, DAILY
     Route: 042
     Dates: start: 20180617, end: 20180617

REACTIONS (2)
  - Cerebral infarction [Not Recovered/Not Resolved]
  - Cerebral infarction [Fatal]

NARRATIVE: CASE EVENT DATE: 20180629
